FAERS Safety Report 23783885 (Version 1)
Quarter: 2024Q2

REPORT INFORMATION
  Report Type: Spontaneous
  Country: US (occurrence: US)
  Receive Date: 20240425
  Receipt Date: 20240425
  Transmission Date: 20240716
  Serious: No
  Sender: FDA-Public Use
  Company Number: US-HALEON-2170555

PATIENT

DRUGS (3)
  1. ALLI [Suspect]
     Active Substance: ORLISTAT
     Indication: Product used for unknown indication
     Dates: start: 2021
  2. ALLI [Suspect]
     Active Substance: ORLISTAT
     Dosage: EXPDATE:202403
  3. ALLI [Suspect]
     Active Substance: ORLISTAT
     Dates: start: 2013

REACTIONS (2)
  - Drug ineffective [Unknown]
  - Expired product administered [Unknown]
